FAERS Safety Report 11169215 (Version 1)
Quarter: 2015Q2

REPORT INFORMATION
  Report Type: Spontaneous
  Country: US (occurrence: US)
  Receive Date: 20150605
  Receipt Date: 20150605
  Transmission Date: 20150821
  Serious: No
  Sender: FDA-Public Use
  Company Number: US-BAYER-2015-282171

PATIENT
  Age: 77 Year
  Sex: Female

DRUGS (3)
  1. CLARITIN [Suspect]
     Active Substance: LORATADINE
     Dosage: 1 DF, PRN
     Route: 048
  2. CLARITIN [Suspect]
     Active Substance: LORATADINE
     Dosage: TOOK ABOUT 8-10 YEARS AGO
  3. COPPERTONE [Suspect]
     Active Substance: OCTINOXATE\OCTOCRYLENE
     Dosage: UNK, PRN
     Route: 061

REACTIONS (5)
  - Lacrimation increased [Recovered/Resolved]
  - Medication error [Unknown]
  - Eyelid oedema [Recovered/Resolved]
  - Eye irritation [Recovered/Resolved]
  - Medication error [Unknown]

NARRATIVE: CASE EVENT DATE: 20150525
